FAERS Safety Report 9695964 (Version 1)
Quarter: 2013Q4

REPORT INFORMATION
  Report Type: Spontaneous
  Country: US (occurrence: None)
  Receive Date: 20131118
  Receipt Date: 20131118
  Transmission Date: 20140711
  Serious: Yes (Hospitalization, Other)
  Sender: FDA-Public Use
  Company Number: None

PATIENT
  Age: 67 Year
  Sex: Female
  Weight: 80.74 kg

DRUGS (8)
  1. ACETAMINOPHEN\OXYCODONE HYDROCHLORIDE [Suspect]
     Indication: BACK PAIN
     Route: 048
     Dates: start: 20130712, end: 20130723
  2. METHOCARBAMOL [Suspect]
     Indication: BACK PAIN
     Route: 048
     Dates: start: 20130712, end: 20130723
  3. ATIVAN [Suspect]
     Indication: BACK PAIN
     Route: 048
     Dates: start: 20130712, end: 20130723
  4. ZOFRAN [Suspect]
     Indication: BACK PAIN
     Route: 048
     Dates: start: 20130712, end: 20130723
  5. OXYCODONE [Suspect]
     Indication: BACK PAIN
     Route: 048
     Dates: start: 20130712, end: 20130723
  6. SUPREP [Suspect]
     Indication: BACK PAIN
     Route: 048
     Dates: start: 20130712, end: 20130723
  7. LISINIPRIL 5MG [Suspect]
  8. BABY ASPIRIN [Suspect]

REACTIONS (1)
  - Pain [None]
